FAERS Safety Report 6306688-2 (Version None)
Quarter: 2009Q3

REPORT INFORMATION
  Report Type: 
  Country: None (occurrence: None)
  Receive Date: 20090811
  Receipt Date: 20090811
  Transmission Date: 20100115
  Serious: Yes (Life-Threatening, Hospitalization)
  Sender: FDA-Public Use
  Company Number: None

PATIENT
  Age: 51 Year
  Sex: Female
  Weight: 109 kg

DRUGS (14)
  1. TEMSIROLIMUS 25MG/ML [Suspect]
     Indication: RENAL CELL CARCINOMA
     Dosage: 25MCG WEEKLY IV BOLUS
     Route: 040
     Dates: start: 20090604, end: 20090729
  2. ZANTAC [Concomitant]
  3. SYNTHROID [Concomitant]
  4. TENORMIN [Concomitant]
  5. PROTEIN SUPPLEMENT POWDER [Concomitant]
  6. SUBLIMAZE PRESERVATIVE FREE [Concomitant]
  7. NEURONTIN [Concomitant]
  8. AMINOCAPROIC ACID [Concomitant]
  9. ZOFRAN [Concomitant]
  10. ANCEF [Concomitant]
  11. COMBIVENT [Concomitant]
  12. DIPRIVAN [Concomitant]
  13. ACETAMINOPHEN [Concomitant]
  14. NORMODYNE;TRANDATE [Concomitant]

REACTIONS (3)
  - EPISTAXIS [None]
  - HAEMORRHAGIC ANAEMIA [None]
  - RESPIRATORY FAILURE [None]
